FAERS Safety Report 5184079-8 (Version None)
Quarter: 2006Q4

REPORT INFORMATION
  Report Type: 
  Country: None (occurrence: None)
  Receive Date: 20061220
  Receipt Date: 20060208
  Transmission Date: 20070319
  Serious: No
  Sender: FDA-Public Use
  Company Number: US-GLAXOSMITHKLINE-A0592803A

PATIENT
  Age: 45 Year
  Sex: Male

DRUGS (4)
  1. NICODERM CQ [Suspect]
     Dates: start: 20060125, end: 20060207
  2. VITAMIN TAB [Concomitant]
  3. MINERAL SUPPLEMENT [Concomitant]
  4. HERBAL PRODUCT [Concomitant]

REACTIONS (1)
  - EPISTAXIS [None]
